FAERS Safety Report 9765114 (Version 1)
Quarter: 2013Q4

REPORT INFORMATION
  Report Type: Spontaneous
  Country: US (occurrence: None)
  Receive Date: 20131216
  Receipt Date: 20131216
  Transmission Date: 20140711
  Serious: Yes (Other)
  Sender: FDA-Public Use
  Company Number: None

PATIENT
  Age: 27 Year
  Sex: Female
  Weight: 64.41 kg

DRUGS (1)
  1. CREST PRO-HEALTH RINSE [Suspect]
     Indication: DENTAL DISORDER PROPHYLAXIS
     Dosage: 20 ML USE WITH BRUSHING. TAKEN BY MOUTH.
     Route: 048
     Dates: start: 20131017, end: 20131207

REACTIONS (3)
  - Tooth discolouration [None]
  - Hypogeusia [None]
  - Glossodynia [None]
